FAERS Safety Report 6354755-X (Version None)
Quarter: 2009Q3

REPORT INFORMATION
  Report Type: 
  Country: None (occurrence: None)
  Receive Date: 20090909
  Receipt Date: 20090831
  Transmission Date: 20100115
  Serious: Yes (Death)
  Sender: FDA-Public Use
  Company Number: 2009EU001515

PATIENT
  Age: 30 Year
  Sex: Male

DRUGS (5)
  1. PROGRAF [Suspect]
     Indication: TRANSPLANT
     Dosage: D
  2. MYCOPHENOLATE MOFETIL [Suspect]
     Indication: TRANSPLANT
     Dosage: D
  3. THYMOGLOBULIN [Suspect]
     Indication: TRANSPLANT
     Dosage: D
  4. ANTILYMPHOCYTE IMMUNOGLOBULIN (ANTILYMPHOCYTE IMMUNOGLOBULIN) [Concomitant]
  5. CORTICOSTEROID NOS (CORTICOSTEROID NOS) [Concomitant]

REACTIONS (4)
  - BACTERIAL INFECTION [None]
  - CARDIAC FAILURE [None]
  - OFF LABEL USE [None]
  - SKIN GRAFT INFECTION [None]
